FAERS Safety Report 12530871 (Version 3)
Quarter: 2016Q3

REPORT INFORMATION
  Report Type: Spontaneous
  Country: US (occurrence: US)
  Receive Date: 20160706
  Receipt Date: 20160823
  Transmission Date: 20161109
  Serious: Yes (Death, Other)
  Sender: FDA-Public Use
  Company Number: US-PFIZER INC-2016330885

PATIENT
  Age: 32 Year
  Sex: Female

DRUGS (5)
  1. IFOSFAMIDE. [Suspect]
     Active Substance: IFOSFAMIDE
     Indication: ANGIOSARCOMA
     Dosage: UNK, CYCLIC (FIRST CYCLE)
  2. DOCETAXEL. [Concomitant]
     Active Substance: DOCETAXEL
     Indication: ANGIOSARCOMA
  3. ADRIAMYCIN [Concomitant]
     Active Substance: DOXORUBICIN HYDROCHLORIDE
     Indication: ANGIOSARCOMA
     Dosage: UNK
  4. GEMCITABINE [Concomitant]
     Active Substance: GEMCITABINE\GEMCITABINE HYDROCHLORIDE
     Indication: ANGIOSARCOMA
     Dosage: UNK
  5. DOXORUBICIN HCL [Suspect]
     Active Substance: DOXORUBICIN HYDROCHLORIDE
     Indication: ANGIOSARCOMA
     Dosage: UNK, CYCLIC (FIRST CYCLE)

REACTIONS (4)
  - Decreased appetite [Unknown]
  - Hepatocellular injury [Fatal]
  - Mucosal inflammation [Unknown]
  - Thrombocytopenia [Unknown]
